FAERS Safety Report 10188933 (Version 1)
Quarter: 2014Q2

REPORT INFORMATION
  Report Type: Spontaneous
  Country: US (occurrence: US)
  Receive Date: 20140522
  Receipt Date: 20140522
  Transmission Date: 20141212
  Serious: No
  Sender: FDA-Public Use
  Company Number: US-SA-2014SA029676

PATIENT
  Age: 70 Year
  Sex: Female

DRUGS (2)
  1. LANTUS [Suspect]
     Indication: TYPE 1 DIABETES MELLITUS
     Dosage: TAKEN FROM: 12 YEARS AGO. DOSE:3 UNIT(S)
     Route: 051
  2. HUMALOG [Suspect]
     Route: 065

REACTIONS (3)
  - Malaise [Unknown]
  - Infection [Unknown]
  - Blood glucose increased [Recovered/Resolved]
